FAERS Safety Report 7227671-9 (Version None)
Quarter: 2011Q1

REPORT INFORMATION
  Report Type: 
  Country: None (occurrence: None)
  Receive Date: 20110114
  Receipt Date: 20091112
  Transmission Date: 20110831
  Serious: Yes (Other)
  Sender: FDA-Public Use
  Company Number: US-PFIZER INC-2009297498

PATIENT

DRUGS (2)
  1. LISINOPRIL [Suspect]
     Dosage: 4 UNK, UNK
  2. CARDURA [Suspect]

REACTIONS (2)
  - BLOOD PRESSURE DECREASED [None]
  - FEELING ABNORMAL [None]
